FAERS Safety Report 9181748 (Version 1)
Quarter: 2013Q1

REPORT INFORMATION
  Report Type: Spontaneous
  Country: US (occurrence: US)
  Receive Date: 20130322
  Receipt Date: 20130322
  Transmission Date: 20140127
  Serious: Yes (Hospitalization, Other)
  Sender: FDA-Public Use
  Company Number: US-BAYER-2013-034513

PATIENT
  Age: 21 Year
  Sex: Female

DRUGS (9)
  1. YAZ [Suspect]
  2. YASMIN [Suspect]
     Indication: CONTRACEPTION
  3. YASMIN [Suspect]
     Indication: DYSMENORRHOEA
  4. OCELLA [Suspect]
  5. ZYRTEC [Concomitant]
     Dosage: UNK
     Route: 048
     Dates: start: 20081007
  6. MELATONIN [Concomitant]
     Dosage: UNK
     Route: 048
     Dates: start: 20120428
  7. MELATONIN [Concomitant]
  8. CALCIUM [Concomitant]
     Dosage: UNK
     Route: 048
     Dates: start: 20120428
  9. LO/OVRAL [Concomitant]

REACTIONS (2)
  - Deep vein thrombosis [None]
  - Portal vein thrombosis [None]
